FAERS Safety Report 8484913-X (Version None)
Quarter: 2012Q3

REPORT INFORMATION
  Report Type: 
  Country: None (occurrence: None)
  Receive Date: 20120703
  Receipt Date: 20120625
  Transmission Date: 20120928
  Serious: Yes (Hospitalization)
  Sender: FDA-Public Use
  Company Number: US-ASTELLAS-2012US005740

PATIENT
  Sex: Female
  Weight: 84 kg

DRUGS (3)
  1. VESICARE [Suspect]
     Indication: HYPERTONIC BLADDER
     Dosage: 5 MG, UID/QD
     Route: 048
     Dates: end: 20120301
  2. METOPROLOL SUCCINATE [Concomitant]
     Indication: HYPERTENSION
     Dosage: 50 G, UID/QD
     Route: 048
  3. LISINOPRIL [Concomitant]
     Indication: HYPERTENSION
     Dosage: 20 G, UID/QD
     Route: 048

REACTIONS (8)
  - MIGRAINE [None]
  - DRY MOUTH [None]
  - DRUG INEFFECTIVE [None]
  - HALLUCINATION [None]
  - DYSPNOEA [None]
  - GASTROINTESTINAL DISORDER [None]
  - VISION BLURRED [None]
  - CONSTIPATION [None]
